FAERS Safety Report 7467944-8 (Version None)
Quarter: 2011Q2

REPORT INFORMATION
  Report Type: 
  Country: None (occurrence: None)
  Receive Date: 20110509
  Receipt Date: 20110222
  Transmission Date: 20111010
  Serious: No
  Sender: FDA-Public Use
  Company Number: US-ALEXION-A201100239

PATIENT

DRUGS (1)
  1. SOLIRIS [Suspect]
     Indication: PAROXYSMAL NOCTURNAL HAEMOGLOBINURIA
     Dosage: UNK, Q2W
     Route: 042
     Dates: start: 20100827

REACTIONS (7)
  - SENSATION OF HEAVINESS [None]
  - BLOOD PRESSURE INCREASED [None]
  - FATIGUE [None]
  - HAEMOLYSIS [None]
  - CHROMATURIA [None]
  - HAEMOGLOBINURIA [None]
  - HEADACHE [None]
